FAERS Safety Report 15384527 (Version 1)
Quarter: 2018Q3

REPORT INFORMATION
  Report Type: Spontaneous
  Country: US (occurrence: US)
  Receive Date: 20180907
  Receipt Date: 20180907
  Transmission Date: 20181010
  Serious: Yes (Death, Life-Threatening, Disabling)
  Sender: FDA-Public Use
  Company Number: None

PATIENT
  Age: 71 Year
  Sex: Female
  Weight: 61.65 kg

DRUGS (5)
  1. VALSARTAN 320MG TAB CAD [Suspect]
     Active Substance: VALSARTAN
     Indication: HYPERTENSION
     Dosage: ?          QUANTITY:1 DF DOSAGE FORM;?
     Route: 048
  2. LIPITOR [Concomitant]
     Active Substance: ATORVASTATIN CALCIUM
  3. IBESARTEN [Concomitant]
  4. PEPCID [Concomitant]
     Active Substance: FAMOTIDINE
  5. VITAMIN D3 [Concomitant]
     Active Substance: CHOLECALCIFEROL

REACTIONS (8)
  - Gait inability [None]
  - Metastases to liver [None]
  - Haematemesis [None]
  - Colitis [None]
  - Hepatitis [None]
  - Lung cancer metastatic [None]
  - Product use issue [None]
  - Asthenia [None]

NARRATIVE: CASE EVENT DATE: 20180721
